FAERS Safety Report 19125178 (Version 1)
Quarter: 2021Q2

REPORT INFORMATION
  Report Type: Report from Study
  Country: US (occurrence: US)
  Receive Date: 20210413
  Receipt Date: 20210413
  Transmission Date: 20210717
  Serious: Yes (Hospitalization, Other)
  Sender: FDA-Public Use
  Company Number: US-GILEAD-2021-0523952

PATIENT
  Age: 5 Year
  Sex: Female

DRUGS (12)
  1. TRILEPTAL [Concomitant]
     Active Substance: OXCARBAZEPINE
  2. BACLOFEN. [Concomitant]
     Active Substance: BACLOFEN
  3. AZTREONAM LYSINE [Suspect]
     Active Substance: AZTREONAM LYSINE
     Indication: PRODUCT USED FOR UNKNOWN INDICATION
     Dosage: 75 MG, TID
     Route: 055
     Dates: start: 20200429
  4. SODIUM CITRATE. [Concomitant]
     Active Substance: SODIUM CITRATE
  5. VITAMIN B1 [Concomitant]
     Active Substance: THIAMINE HYDROCHLORIDE
  6. CARNITINE [Concomitant]
     Active Substance: CARNITINE
  7. LUPRON DEPOT [Concomitant]
     Active Substance: LEUPROLIDE ACETATE
  8. NEXIUM I.V. [Concomitant]
     Active Substance: ESOMEPRAZOLE SODIUM
  9. GLYCOPYRROLATE. [Concomitant]
     Active Substance: GLYCOPYRROLATE
  10. VIGABATRIN. [Concomitant]
     Active Substance: VIGABATRIN
  11. BUDESONIDE. [Concomitant]
     Active Substance: BUDESONIDE
  12. PEPCID [Concomitant]
     Active Substance: FAMOTIDINE

REACTIONS (2)
  - Off label use [Not Recovered/Not Resolved]
  - Portal shunt procedure [Recovered/Resolved]

NARRATIVE: CASE EVENT DATE: 20210304
